FAERS Safety Report 7169510-0 (Version None)
Quarter: 2010Q4

REPORT INFORMATION
  Report Type: 
  Country: None (occurrence: None)
  Receive Date: 20101217
  Receipt Date: 20101209
  Transmission Date: 20110411
  Serious: Yes (Other)
  Sender: FDA-Public Use
  Company Number: JP-PFIZER INC-2010138318

PATIENT
  Age: 62 Year
  Sex: Male
  Weight: 69 kg

DRUGS (11)
  1. LYRICA [Suspect]
     Indication: COMPLEX REGIONAL PAIN SYNDROME
     Dosage: 50 MG, 1X/DAY
     Route: 048
     Dates: start: 20100709, end: 20100726
  2. TEGRETOL [Concomitant]
     Dosage: UNK
     Route: 048
  3. SYMMETREL [Concomitant]
     Dosage: 50 MG, 4X/DAY
     Route: 048
     Dates: start: 20060114
  4. MOBIC [Concomitant]
     Dosage: UNK
     Route: 048
  5. LENDORMIN [Concomitant]
     Dosage: UNK
     Route: 048
  6. TRYPTANOL [Concomitant]
     Dosage: UNK
     Route: 048
  7. MEXITIL [Concomitant]
     Dosage: UNK
  8. TETRAMIDE [Concomitant]
     Dosage: UNK
     Route: 048
     Dates: end: 20071116
  9. GABAPENTIN [Concomitant]
     Dosage: UNK
     Route: 048
     Dates: start: 20071031
  10. VOLTAREN [Concomitant]
     Route: 048
  11. KETALAR [Concomitant]
     Route: 041

REACTIONS (4)
  - DRUG ERUPTION [None]
  - DYSPNOEA [None]
  - PRURITUS [None]
  - RASH [None]
